FAERS Safety Report 10084528 (Version 1)
Quarter: 2014Q2

REPORT INFORMATION
  Report Type: Spontaneous
  Country: US (occurrence: None)
  Receive Date: 20140404
  Receipt Date: 20140404
  Transmission Date: 20141212
  Serious: No
  Sender: FDA-Public Use
  Company Number: 1330864

PATIENT
  Sex: Female

DRUGS (3)
  1. PERJETA [Suspect]
     Indication: PRODUCT USED FOR UNKNOWN INDICATION
     Dosage: UNKNOWN
     Dates: start: 201307
  2. HERCEPTIN [Suspect]
     Indication: BREAST CANCER METASTATIC
     Dates: start: 201307
  3. DOCETAXEL [Suspect]
     Indication: PRODUCT USED FOR UNKNOWN INDICATION
     Dosage: UNKNOWN
     Dates: start: 201307

REACTIONS (12)
  - Epistaxis [None]
  - Hypersensitivity [None]
  - Fatigue [None]
  - Cardiac disorder [None]
  - Extrasystoles [None]
  - Heart rate increased [None]
  - Insomnia [None]
  - Dyspnoea [None]
  - Sinus congestion [None]
  - Rash [None]
  - Pruritus [None]
  - Sinus disorder [None]
